FAERS Safety Report 5269004-3 (Version None)
Quarter: 2007Q1

REPORT INFORMATION
  Report Type: 
  Country: None (occurrence: None)
  Receive Date: 20070319
  Receipt Date: 20070309
  Transmission Date: 20070707
  Serious: Yes (Disabling)
  Sender: FDA-Public Use
  Company Number: GB-SANOFI-SYNTHELABO-F01200700336

PATIENT
  Sex: Male
  Weight: 69 kg

DRUGS (6)
  1. CAPECITABINE [Suspect]
     Dosage: 1000 MG/M2 BID DAYS 1-14
     Route: 048
  2. COCODAMOL [Concomitant]
     Route: 048
     Dates: start: 20070105
  3. PYRIDOXINE HCL [Concomitant]
     Route: 048
     Dates: start: 20070105
  4. OMEPRAZOLE [Concomitant]
     Route: 048
     Dates: start: 20070105
  5. ATORVASTATIN CALCIUM [Concomitant]
     Route: 048
     Dates: start: 20070105
  6. OXALIPLATIN [Suspect]
     Indication: COLORECTAL CANCER METASTATIC
     Route: 041
     Dates: start: 20070226, end: 20070226

REACTIONS (3)
  - DYSARTHRIA [None]
  - HYPOAESTHESIA [None]
  - TRANSIENT ISCHAEMIC ATTACK [None]
